FAERS Safety Report 25863279 (Version 3)
Quarter: 2025Q4

REPORT INFORMATION
  Report Type: Report from Study
  Country: US (occurrence: US)
  Receive Date: 20250930
  Receipt Date: 20251128
  Transmission Date: 20260118
  Serious: Yes (Other)
  Sender: ALEXION PHARMACEUTICALS
  Company Number: US-AstraZeneca-CH-00953877A

PATIENT
  Sex: Male

DRUGS (1)
  1. ULTOMIRIS [Suspect]
     Active Substance: RAVULIZUMAB-CWVZ
     Indication: Myasthenia gravis
     Route: 065

REACTIONS (9)
  - Asthenia [Unknown]
  - Inappropriate schedule of product administration [Unknown]
  - Herpes zoster [Unknown]
  - Dysstasia [Unknown]
  - Coccydynia [Unknown]
  - Fatigue [Unknown]
  - Pain [Unknown]
  - Post procedural infection [Unknown]
  - Gait disturbance [Unknown]
